FAERS Safety Report 21696089 (Version 1)
Quarter: 2022Q4

REPORT INFORMATION
  Report Type: Spontaneous
  Country: GB (occurrence: GB)
  Receive Date: 20221207
  Receipt Date: 20221207
  Transmission Date: 20230113
  Serious: Yes (Other)
  Sender: FDA-Public Use
  Company Number: GB-MHRA-MED-202211282141498490-ZVHPM

PATIENT
  Age: 41 Year
  Sex: Female
  Weight: 58 kg

DRUGS (5)
  1. TOPAMAX [Suspect]
     Active Substance: TOPIRAMATE
     Indication: Migraine
     Dosage: STARTED 15MG DAY WHEN PERIOD STOPPED WAS ON 2*50MG A DAY. NOW ON 2*100MG A DAY
     Route: 048
     Dates: start: 20220607, end: 2022
  2. TOPAMAX [Suspect]
     Active Substance: TOPIRAMATE
     Dosage: STARTED 15MG DAY WHEN PERIOD STOPPED WAS ON 2*50MG A DAY. NOW ON 2*100MG A DAY
     Route: 048
     Dates: start: 2022, end: 2022
  3. TOPAMAX [Suspect]
     Active Substance: TOPIRAMATE
     Dosage: STARTED 15MG DAY WHEN PERIOD STOPPED WAS ON 2*50MG A DAY. NOW ON 2*100MG A DAY
     Route: 048
     Dates: start: 2022, end: 2022
  4. TOPAMAX [Suspect]
     Active Substance: TOPIRAMATE
     Dosage: STARTED 15MG DAY WHEN PERIOD STOPPED WAS ON 2*50MG A DAY. NOW ON 2*100MG A DAY
     Route: 048
     Dates: start: 2022
  5. SERTRALINE [Concomitant]
     Active Substance: SERTRALINE HYDROCHLORIDE
     Route: 065

REACTIONS (1)
  - Amenorrhoea [Not Recovered/Not Resolved]

NARRATIVE: CASE EVENT DATE: 20220927
